FAERS Safety Report 11798122 (Version 1)
Quarter: 2015Q4

REPORT INFORMATION
  Report Type: Spontaneous
  Country: TR (occurrence: TR)
  Receive Date: 20151203
  Receipt Date: 20151203
  Transmission Date: 20160305
  Serious: Yes (Hospitalization)
  Sender: FDA-Public Use
  Company Number: TR-VALIDUS PHARMACEUTICALS LLC-TR-2015VAL000728

PATIENT
  Age: 56 Year
  Sex: Male

DRUGS (1)
  1. CARBAMAZEPINE. [Suspect]
     Active Substance: CARBAMAZEPINE
     Indication: TEMPORAL LOBE EPILEPSY
     Dosage: 400 MG, DAILY

REACTIONS (3)
  - Syncope [Recovered/Resolved]
  - Dizziness [Recovered/Resolved]
  - Atrioventricular block [Recovered/Resolved]
